FAERS Safety Report 5338128-4 (Version None)
Quarter: 2007Q2

REPORT INFORMATION
  Report Type: 
  Country: None (occurrence: None)
  Receive Date: 20070530
  Receipt Date: 20070524
  Transmission Date: 20071010
  Serious: Yes (Death, Hospitalization)
  Sender: FDA-Public Use
  Company Number: PHBS2007BR08427

PATIENT
  Age: 69 Year
  Sex: Female

DRUGS (7)
  1. DIOVAN [Suspect]
     Indication: HYPERTENSION
     Dosage: 320 MG, QD
     Route: 048
     Dates: start: 20070401
  2. PURAN T4 [Concomitant]
     Indication: HYPOTHYROIDISM
     Dosage: 75 MG, QD
     Route: 048
     Dates: start: 20000101
  3. ASPIRIN [Concomitant]
     Dosage: 100 MG, UNK
     Dates: start: 20050101
  4. GINKGO BILOBA [Concomitant]
     Indication: DIZZINESS
     Dosage: 80 MG, UNK
     Dates: start: 20050101
  5. OMEPRAZOLE [Concomitant]
     Indication: ABDOMINAL PAIN UPPER
     Dosage: 20 MG, QD
     Route: 048
     Dates: start: 20050101
  6. CRESTOR [Concomitant]
     Indication: BLOOD CHOLESTEROL INCREASED
     Dosage: 10 MG, UNK
     Dates: start: 20050101
  7. RETNOREN [Concomitant]
     Indication: CARDIAC FIBRILLATION
     Dosage: 300 MG, UNK
     Dates: start: 20050101

REACTIONS (8)
  - ANAEMIA [None]
  - DIALYSIS [None]
  - DIZZINESS [None]
  - DYSPNOEA [None]
  - HAEMOGLOBIN DECREASED [None]
  - HYPOTENSION [None]
  - MULTI-ORGAN FAILURE [None]
  - RENAL FAILURE [None]
